FAERS Safety Report 10922843 (Version 2)
Quarter: 2015Q1

REPORT INFORMATION
  Report Type: Spontaneous
  Country: BR (occurrence: BR)
  Receive Date: 20150317
  Receipt Date: 20150325
  Transmission Date: 20150721
  Serious: Yes (Death, Life-Threatening, Hospitalization, Other)
  Sender: FDA-Public Use
  Company Number: BR-ELI_LILLY_AND_COMPANY-BR201503004315

PATIENT
  Sex: Male
  Weight: 65 kg

DRUGS (19)
  1. NAUSEDRON [Concomitant]
     Active Substance: ONDANSETRON HYDROCHLORIDE
     Dosage: UNK, UNKNOWN
     Route: 065
  2. ACIDO FOLICO                       /00024201/ [Concomitant]
     Dosage: UNK, UNKNOWN
     Route: 065
  3. IPRATROPIUM BROMIDE. [Concomitant]
     Active Substance: IPRATROPIUM BROMIDE
     Dosage: UNK, UNKNOWN
     Route: 065
  4. FLUIMUCIL [Concomitant]
     Active Substance: ACETYLCYSTEINE
     Dosage: UNK, UNKNOWN
     Route: 065
  5. SINVASTATINA [Concomitant]
     Active Substance: SIMVASTATIN
     Dosage: UNK, UNKNOWN
     Route: 065
  6. DUOVENT [Concomitant]
     Active Substance: FENOTEROL HYDROBROMIDE
     Dosage: UNK, UNKNOWN
     Route: 065
  7. FAULDCARBO [Concomitant]
     Active Substance: CARBOPLATIN
     Indication: PRODUCT USED FOR UNKNOWN INDICATION
     Dosage: UNK, UNKNOWN
     Route: 042
     Dates: start: 20150124
  8. ARADOIS [Concomitant]
     Active Substance: LOSARTAN POTASSIUM
     Dosage: UNK, UNKNOWN
     Route: 065
  9. VITAMIN B12 [Concomitant]
     Active Substance: CYANOCOBALAMIN
     Dosage: UNK, UNKNOWN
     Route: 065
  10. BAMIFIX [Concomitant]
     Active Substance: BAMIFYLLINE HYDROCHLORIDE
     Dosage: UNK, UNKNOWN
     Route: 065
  11. DECADRON [Concomitant]
     Active Substance: DEXAMETHASONE
     Dosage: UNK, UNKNOWN
     Route: 065
  12. SOMALGIN [Concomitant]
     Active Substance: ASPIRIN\DIHYDROXYALUMINUM AMINOACETATE ANHYDROUS\MAGNESIUM CARBONATE
     Dosage: UNK, UNKNOWN
     Route: 065
  13. FORASEQ [Concomitant]
     Active Substance: BUDESONIDE\FORMOTEROL FUMARATE
     Dosage: UNK, UNKNOWN
     Route: 065
  14. IMOSEC [Concomitant]
     Active Substance: LOPERAMIDE
     Dosage: UNK, UNKNOWN
     Route: 065
  15. LITHIUM CARBONATE. [Concomitant]
     Active Substance: LITHIUM CARBONATE
     Dosage: UNK, UNKNOWN
     Route: 065
  16. RAZAPINA [Concomitant]
     Active Substance: MIRTAZAPINE
     Dosage: UNK, UNKNOWN
     Route: 005
  17. ALIMTA [Suspect]
     Active Substance: PEMETREXED DISODIUM
     Indication: LUNG CARCINOMA CELL TYPE UNSPECIFIED STAGE 0
     Dosage: 871 MG, UNKNOWN
     Route: 042
     Dates: start: 20150128
  18. EXPOLID [Concomitant]
     Dosage: UNK, UNKNOWN
     Route: 065
  19. DILTIAZEM [Concomitant]
     Active Substance: DILTIAZEM
     Dosage: UNK, UNKNOWN
     Route: 065

REACTIONS (8)
  - Death [Fatal]
  - Sepsis [Not Recovered/Not Resolved]
  - Mucosal inflammation [Not Recovered/Not Resolved]
  - Malignant neoplasm progression [Unknown]
  - Infection [Not Recovered/Not Resolved]
  - Renal failure [Not Recovered/Not Resolved]
  - Off label use [Unknown]
  - Febrile neutropenia [Not Recovered/Not Resolved]
